FAERS Safety Report 7947236-0 (Version None)
Quarter: 2011Q4

REPORT INFORMATION
  Report Type: 
  Country: None (occurrence: None)
  Receive Date: 20111129
  Receipt Date: 20111118
  Transmission Date: 20120403
  Serious: Yes (Other)
  Sender: FDA-Public Use
  Company Number: CN-ASTRAZENECA-2011SE69897

PATIENT
  Sex: Female

DRUGS (4)
  1. PROPOFOL [Suspect]
     Indication: ANAESTHESIA
     Route: 042
  2. ATROPINE [Suspect]
     Indication: ANAESTHESIA
     Route: 030
  3. FENTANYL-100 [Suspect]
     Indication: ANAESTHESIA
     Route: 042
  4. NITROUS OXIDE [Suspect]
     Indication: ANAESTHESIA
     Route: 055

REACTIONS (3)
  - INJECTION SITE PAIN [None]
  - RESPIRATORY DEPRESSION [None]
  - PROCEDURAL PAIN [None]
